FAERS Safety Report 4368708-4 (Version None)
Quarter: 2004Q2

REPORT INFORMATION
  Report Type: 
  Country: None (occurrence: None)
  Receive Date: 20040525
  Receipt Date: 20040514
  Transmission Date: 20050107
  Serious: Yes (Disabling)
  Sender: FDA-Public Use
  Company Number: 2004212443NO

PATIENT
  Sex: Male

DRUGS (6)
  1. DETRUSITOL [Suspect]
     Indication: POLLAKIURIA
     Dosage: 4 MG, QD, ORAL
     Route: 048
     Dates: start: 19990401, end: 20040415
  2. LIPITOR [Concomitant]
  3. ALBYL-E [Concomitant]
  4. SELO-ZOK (METOPROLOL SUCCINATE) [Concomitant]
  5. NITROGLICERINA [Concomitant]
  6. CIPRALEX [Concomitant]

REACTIONS (4)
  - ABDOMINAL DISTENSION [None]
  - BLADDER DISORDER [None]
  - CARDIOVASCULAR DISORDER [None]
  - URINARY RETENTION [None]
